FAERS Safety Report 4320656-1 (Version None)
Quarter: 2004Q1

REPORT INFORMATION
  Report Type: 
  Country: None (occurrence: None)
  Receive Date: 20040315
  Receipt Date: 20040225
  Transmission Date: 20041129
  Serious: Yes (Hospitalization)
  Sender: FDA-Public Use
  Company Number: 2004SA000037

PATIENT
  Age: 42 Year
  Sex: Male

DRUGS (1)
  1. THYMOGLOBULIN [Suspect]
     Indication: TRANSPLANT REJECTION

REACTIONS (5)
  - BIOPSY BLADDER ABNORMAL [None]
  - CYSTOSCOPY ABNORMAL [None]
  - POLYURIA [None]
  - PYREXIA [None]
  - URINARY BLADDER HAEMORRHAGE [None]
